FAERS Safety Report 8574268-4 (Version None)
Quarter: 2012Q3

REPORT INFORMATION
  Report Type: 
  Country: None (occurrence: None)
  Receive Date: 20120806
  Receipt Date: 20120723
  Transmission Date: 20120928
  Serious: Yes (Life-Threatening, Hospitalization, Other)
  Sender: FDA-Public Use
  Company Number: US-MERCK-1207USA011328

PATIENT

DRUGS (12)
  1. ZOCOR [Suspect]
     Dosage: 80 MG, QD
     Route: 048
  2. AMOXICILLIN [Suspect]
     Dosage: 500 MG, TID
     Route: 048
  3. GEMCITABINE HYDROCHLORIDE [Suspect]
     Dosage: 4 IN 1 CYCLICAL
  4. ASPIRIN [Concomitant]
     Dosage: 75 MG, QD
  5. CORACTEN [Concomitant]
     Dosage: 30 MG, QD
  6. CLARITHROMYCIN [Concomitant]
     Dosage: 3 IN 1 CYCLICAL
  7. ATENOLOL [Concomitant]
     Dosage: 50 MG, QD
  8. GRANISETRON [Concomitant]
     Route: 048
  9. CHLORDIAZEPOXIDE [Concomitant]
     Dosage: 10 MG, QID
  10. CIPROFLOXACIN [Concomitant]
     Dosage: 3 IN 1 CYCLICAL
  11. CARBOPLATIN [Suspect]
     Dosage: 4 IN 1 CYCLICAL
  12. OMEPRAZOLE [Suspect]
     Dosage: 20 MG, UNK
     Route: 048

REACTIONS (2)
  - RENAL FAILURE ACUTE [None]
  - RHABDOMYOLYSIS [None]
